FAERS Safety Report 5491574-0 (Version None)
Quarter: 2007Q4

REPORT INFORMATION
  Report Type: 
  Country: None (occurrence: None)
  Receive Date: 20071018
  Receipt Date: 20071018
  Transmission Date: 20080405
  Serious: Yes (Hospitalization)
  Sender: FDA-Public Use
  Company Number: None

PATIENT
  Age: 32 Year
  Sex: Female
  Weight: 90 kg

DRUGS (4)
  1. GEMCITABINE HCL [Suspect]
     Indication: LYMPHOMA
     Dosage: 2GM IV QOW
     Route: 042
     Dates: start: 20070621
  2. GEMCITABINE HCL [Suspect]
     Indication: NEOPLASM MALIGNANT
     Dosage: 2GM IV QOW
     Route: 042
     Dates: start: 20070621
  3. SERTRALINE [Concomitant]
  4. DOXEPIN HCL [Concomitant]

REACTIONS (2)
  - PLEURAL EFFUSION [None]
  - PULMONARY EMBOLISM [None]
